FAERS Safety Report 4816802-3 (Version None)
Quarter: 2005Q4

REPORT INFORMATION
  Report Type: 
  Country: None (occurrence: None)
  Receive Date: 20051031
  Receipt Date: 20051031
  Transmission Date: 20060501
  Serious: Yes (Death, Hospitalization)
  Sender: FDA-Public Use
  Company Number: None

PATIENT
  Age: 75 Year
  Sex: Female

DRUGS (3)
  1. TAXOL [Suspect]
  2. ADRIAMYCIN PFS [Suspect]
  3. CISPLATIN [Suspect]

REACTIONS (14)
  - BLOOD ALBUMIN DECREASED [None]
  - BLOOD GASES ABNORMAL [None]
  - CARDIO-RESPIRATORY ARREST [None]
  - DRUG EFFECT DECREASED [None]
  - HYPOXIA [None]
  - MALNUTRITION [None]
  - MENTAL STATUS CHANGES [None]
  - NAUSEA [None]
  - PCO2 DECREASED [None]
  - PULMONARY EMBOLISM [None]
  - PUPIL FIXED [None]
  - RENAL FAILURE ACUTE [None]
  - URINARY TRACT INFECTION BACTERIAL [None]
  - VOMITING [None]
